FAERS Safety Report 8533173-X (Version None)
Quarter: 2012Q3

REPORT INFORMATION
  Report Type: 
  Country: None (occurrence: None)
  Receive Date: 20120724
  Receipt Date: 20120711
  Transmission Date: 20120928
  Serious: Yes (Disabling, Other)
  Sender: FDA-Public Use
  Company Number: US-009507513-1110USA04297

PATIENT

DRUGS (4)
  1. FOSAMAX [Suspect]
     Indication: OSTEOPOROSIS
     Dosage: 70 MG, QW
     Route: 048
     Dates: start: 20030801, end: 20060901
  2. FOSAMAX [Suspect]
     Indication: ANKLE FRACTURE
  3. FOSAMAX PLUS D [Suspect]
     Indication: ANKLE FRACTURE
  4. FOSAMAX PLUS D [Suspect]
     Indication: OSTEOPOROSIS
     Dosage: 70 MG, QW
     Route: 048
     Dates: start: 20060921, end: 20100501

REACTIONS (17)
  - STOMATITIS [None]
  - PERIODONTAL DISEASE [None]
  - OSTEOARTHRITIS [None]
  - BLOOD CHOLESTEROL INCREASED [None]
  - IMPAIRED HEALING [None]
  - OSTEOMYELITIS [None]
  - BONE DISORDER [None]
  - DENTAL CARIES [None]
  - ORAL INFECTION [None]
  - OSTEOLYSIS [None]
  - ABSCESS ORAL [None]
  - HYPERTENSION [None]
  - JAW FRACTURE [None]
  - GINGIVAL DISORDER [None]
  - OSTEONECROSIS OF JAW [None]
  - ORAL SURGERY [None]
  - TOOTH DISORDER [None]
